FAERS Safety Report 9773549 (Version 3)
Quarter: 2014Q1

REPORT INFORMATION
  Report Type: Report from Study
  Country: BE (occurrence: BE)
  Receive Date: 20131219
  Receipt Date: 20140307
  Transmission Date: 20141002
  Serious: Yes (Hospitalization, Other)
  Sender: FDA-Public Use
  Company Number: BE-ABBVIE-13P-013-1177613-00

PATIENT
  Age: 42 Year
  Sex: Female
  Weight: 49 kg

DRUGS (14)
  1. HUMIRA [Suspect]
     Indication: COLITIS ULCERATIVE
     Route: 058
     Dates: start: 20130729, end: 20130729
  2. HUMIRA [Suspect]
     Dosage: WEEK 2
     Route: 058
     Dates: start: 20130813, end: 20130813
  3. HUMIRA [Suspect]
     Route: 058
     Dates: start: 20130827, end: 20131008
  4. HUMIRA [Suspect]
     Route: 058
     Dates: start: 20131015, end: 20131105
  5. MEDROL [Concomitant]
     Indication: COLITIS ULCERATIVE
     Route: 048
     Dates: start: 20130702, end: 20130715
  6. MEDROL [Concomitant]
     Route: 048
     Dates: start: 20130709, end: 20130715
  7. MEDROL [Concomitant]
     Route: 048
     Dates: start: 20130715
  8. MEDROL [Concomitant]
     Dosage: EOD
     Route: 048
     Dates: start: 20130911, end: 20130919
  9. MEDROL [Concomitant]
     Dosage: EOD
     Route: 048
     Dates: start: 20130912, end: 20130920
  10. MEDROL [Concomitant]
     Route: 048
     Dates: start: 20130921, end: 20130930
  11. MEDROL [Concomitant]
     Dosage: EOD
     Route: 048
     Dates: start: 20131001, end: 20131009
  12. MEDROL [Concomitant]
     Dosage: EOD
     Route: 048
     Dates: start: 20131002, end: 20131010
  13. MEDROL [Concomitant]
     Route: 048
     Dates: start: 20131011, end: 20131020
  14. DAFALGAN [Concomitant]
     Indication: HEADACHE
     Route: 048
     Dates: start: 20130709

REACTIONS (2)
  - Colitis ulcerative [Recovered/Resolved]
  - Pneumothorax traumatic [Recovered/Resolved]
